FAERS Safety Report 8088800 (Version 4)
Quarter: 2024Q2

REPORT INFORMATION
  Report Type: Report from Study
  Country: US (occurrence: US)
  Receive Date: 20110812
  Receipt Date: 20240626
  Transmission Date: 20240716
  Serious: Yes (Hospitalization, Other)
  Sender: FDA-Public Use
  Company Number: US-JNJFOC-20110710775

PATIENT
  Age: 53 Year
  Sex: Female
  Weight: 138.47 kg

DRUGS (1)
  1. REMICADE [Suspect]
     Active Substance: INFLIXIMAB
     Indication: Psoriasis
     Route: 041
     Dates: start: 20091001, end: 20110519

REACTIONS (6)
  - Infusion site reaction [Recovered/Resolved]
  - Pneumonia staphylococcal [Recovered/Resolved]
  - Cardiac failure acute [Unknown]
  - Clostridium difficile colitis [Unknown]
  - Acute kidney injury [Unknown]
  - Hyponatraemia [Unknown]

NARRATIVE: CASE EVENT DATE: 20101230
